FAERS Safety Report 10879284 (Version 1)
Quarter: 2015Q1

REPORT INFORMATION
  Report Type: Spontaneous
  Country: JP (occurrence: JP)
  Receive Date: 20150302
  Receipt Date: 20150302
  Transmission Date: 20150721
  Serious: Yes (Life-Threatening, Hospitalization, Other)
  Sender: FDA-Public Use
  Company Number: JP-GLAXOSMITHKLINE-JP2014JPN037819

PATIENT
  Age: 67 Year
  Sex: Female
  Weight: 40 kg

DRUGS (4)
  1. LAMICTAL [Suspect]
     Active Substance: LAMOTRIGINE
     Indication: EPILEPSY
     Dosage: 25 MG, QOD
     Route: 048
     Dates: start: 20141028, end: 201412
  2. LAMICTAL [Suspect]
     Active Substance: LAMOTRIGINE
     Dosage: 50 MG, 1D
     Route: 048
     Dates: start: 2014, end: 20141201
  3. LAMICTAL [Suspect]
     Active Substance: LAMOTRIGINE
     Indication: CONVULSION PROPHYLAXIS
     Dosage: 25 MG, 1D
     Route: 048
     Dates: start: 2014, end: 2014
  4. VALPROATE SODIUM. [Concomitant]
     Active Substance: VALPROATE SODIUM
     Dosage: 600 MG, 1D
     Dates: start: 201403

REACTIONS (18)
  - Tuberculosis [Unknown]
  - Generalised erythema [Recovering/Resolving]
  - Skin exfoliation [Unknown]
  - Pigmentation disorder [Unknown]
  - Stevens-Johnson syndrome [Recovered/Resolved]
  - Erythema multiforme [Recovering/Resolving]
  - Pyrexia [Recovering/Resolving]
  - Scab [Unknown]
  - Rash [Recovered/Resolved]
  - Glossodynia [Unknown]
  - Oral mucosa erosion [Unknown]
  - Conjunctival hyperaemia [Unknown]
  - Oral mucosal eruption [Recovering/Resolving]
  - Swelling face [Recovering/Resolving]
  - Oral herpes [Recovering/Resolving]
  - Rash [Recovering/Resolving]
  - Enanthema [Recovering/Resolving]
  - Papule [Recovering/Resolving]

NARRATIVE: CASE EVENT DATE: 20141113
